FAERS Safety Report 6410754-0 (Version None)
Quarter: 2009Q4

REPORT INFORMATION
  Report Type: 
  Country: None (occurrence: None)
  Receive Date: 20091022
  Receipt Date: 20091014
  Transmission Date: 20100525
  Serious: Yes (Hospitalization)
  Sender: FDA-Public Use
  Company Number: SV-ABBOTT-09P-050-0602552-00

PATIENT
  Age: 42 Year
  Sex: Female

DRUGS (3)
  1. HUMIRA [Suspect]
     Indication: RHEUMATOID ARTHRITIS
     Route: 058
     Dates: start: 20090401
  2. ACYCLOVIR [Concomitant]
     Indication: HERPES ZOSTER
     Route: 048
  3. ACYCLOVIR [Concomitant]
     Indication: PROPHYLAXIS

REACTIONS (3)
  - CHILLS [None]
  - LEUKOCYTOSIS [None]
  - URINARY TRACT INFECTION [None]
